FAERS Safety Report 8448886-8 (Version None)
Quarter: 2012Q2

REPORT INFORMATION
  Report Type: 
  Country: None (occurrence: None)
  Receive Date: 20120619
  Receipt Date: 20120217
  Transmission Date: 20120825
  Serious: Yes (Hospitalization)
  Sender: FDA-Public Use
  Company Number: US-GLAXOSMITHKLINE-A0966811A

PATIENT
  Age: 54 Year
  Sex: Male

DRUGS (1)
  1. AVANDIA [Suspect]
     Indication: DIABETES MELLITUS
     Dosage: 4MG PER DAY
     Route: 048
     Dates: start: 20020601, end: 20090901

REACTIONS (4)
  - CORONARY ARTERY BYPASS [None]
  - HYPERTENSION [None]
  - MYOCARDIAL INFARCTION [None]
  - PENILE PROSTHESIS INSERTION [None]
